FAERS Safety Report 8619737-3 (Version None)
Quarter: 2012Q3

REPORT INFORMATION
  Report Type: 
  Country: None (occurrence: None)
  Receive Date: 20120824
  Receipt Date: 20120814
  Transmission Date: 20120928
  Serious: Yes (Hospitalization, Disabling, Other)
  Sender: FDA-Public Use
  Company Number: US-009507513-1206USA04691

PATIENT

DRUGS (8)
  1. FOSAMAX [Suspect]
     Dosage: 70 MG, QM
  2. INHALED CORTICOSTEROID (UNSPECIFIED) [Concomitant]
     Indication: ASTHMA
     Dosage: UNK
     Dates: start: 19800101
  3. FOSAMAX [Suspect]
     Indication: OSTEOPOROSIS
     Dosage: 70 MG, QW
     Route: 048
     Dates: start: 20011202, end: 20090502
  4. SEREVENT [Concomitant]
     Indication: ASTHMA
  5. FOSAMAX [Suspect]
     Indication: OSTEOPENIA
  6. FOSAMAX [Suspect]
  7. HORMONES (UNSPECIFIED) [Concomitant]
  8. AZMACORT [Concomitant]
     Indication: ASTHMA

REACTIONS (50)
  - BURSITIS [None]
  - HAEMANGIOMA [None]
  - HIATUS HERNIA [None]
  - GINGIVAL DISORDER [None]
  - TOOTH EXTRACTION [None]
  - INSOMNIA [None]
  - CONSTIPATION [None]
  - JOINT SWELLING [None]
  - MUSCLE SPASMS [None]
  - FEMUR FRACTURE [None]
  - OPEN REDUCTION OF FRACTURE [None]
  - RIB FRACTURE [None]
  - UNDERDOSE [None]
  - RADICULITIS [None]
  - SYNOVIAL CYST [None]
  - INTERVERTEBRAL DISC PROTRUSION [None]
  - ORAL SURGERY [None]
  - BLOOD GLUCOSE INCREASED [None]
  - OSTEOPOROSIS [None]
  - ANAEMIA POSTOPERATIVE [None]
  - MUSCLE TIGHTNESS [None]
  - HYPOTENSION [None]
  - IRRITABLE BOWEL SYNDROME [None]
  - ERYTHEMA [None]
  - VOMITING [None]
  - STRESS FRACTURE [None]
  - INAPPROPRIATE SCHEDULE OF DRUG ADMINISTRATION [None]
  - DRUG ADMINISTRATION ERROR [None]
  - INTERVERTEBRAL DISC DEGENERATION [None]
  - UPPER LIMB FRACTURE [None]
  - POST LUMBAR PUNCTURE SYNDROME [None]
  - BACK PAIN [None]
  - SPINAL FUSION ACQUIRED [None]
  - FALL [None]
  - HYPONATRAEMIA [None]
  - TONSILLECTOMY [None]
  - LIMB ASYMMETRY [None]
  - DENTAL FISTULA [None]
  - ARTHRITIS [None]
  - ARTHRALGIA [None]
  - NAUSEA [None]
  - LOW TURNOVER OSTEOPATHY [None]
  - SCAPULA FRACTURE [None]
  - DENTAL IMPLANTATION [None]
  - SCOLIOSIS [None]
  - FOOT DEFORMITY [None]
  - OSTEOARTHRITIS [None]
  - TOOTH DISORDER [None]
  - FOOT FRACTURE [None]
  - EXCORIATION [None]
